FAERS Safety Report 22197671 (Version 1)
Quarter: 2023Q2

REPORT INFORMATION
  Report Type: Spontaneous
  Country: NL (occurrence: NL)
  Receive Date: 20230411
  Receipt Date: 20230411
  Transmission Date: 20230722
  Serious: Yes (Death)
  Sender: FDA-Public Use
  Company Number: None

PATIENT
  Sex: Female
  Weight: 95 kg

DRUGS (5)
  1. LOSARTAN [Suspect]
     Active Substance: LOSARTAN
     Indication: Hypertension
     Dosage: 100 MG, QD (1 X PER DAG 1 STUK)
     Route: 065
     Dates: start: 20170103, end: 20230201
  2. TIOTROPIUM [Concomitant]
     Active Substance: TIOTROPIUM
     Indication: Product used for unknown indication
     Dosage: (INHALATIEPOEDER, 13 ?G (MICROGRAM) (FORMULATION: INHALATION CAPSULE)
     Route: 065
  3. ALBUTEROL [Concomitant]
     Active Substance: ALBUTEROL
     Indication: Product used for unknown indication
     Dosage: (AEROSOL, 100 ?G/DOSIS (MICROGRAM PER DOSIS) (STRENGTH: 100 UG/DO)
     Route: 065
  4. ESTRIOL [Concomitant]
     Active Substance: ESTRIOL
     Indication: Product used for unknown indication
     Dosage: (CREME VOOR VAGINAAL GEBRUIK, 1 MG/G (MILLIGRAM PER GRAM)
     Route: 065
  5. METOPROLOL [Concomitant]
     Active Substance: METOPROLOL
     Indication: Product used for unknown indication
     Dosage: (TABLET MET GEREGULEERDE AFGIFTE, 50 MG (MILLIGRAM)
     Route: 065

REACTIONS (2)
  - Laryngeal oedema [Fatal]
  - Rash [Unknown]
